FAERS Safety Report 4635932-2 (Version None)
Quarter: 2005Q2

REPORT INFORMATION
  Report Type: 
  Country: None (occurrence: None)
  Receive Date: 20050415
  Receipt Date: 20050405
  Transmission Date: 20051028
  Serious: Yes (Disabling)
  Sender: FDA-Public Use
  Company Number: PHHO2005ZA05997

PATIENT
  Age: 12 Year
  Sex: Male
  Weight: 31 kg

DRUGS (1)
  1. TERBINAFINE VS GRISEOFULVIN [Suspect]
     Indication: TINEA CAPITIS
     Dosage: BLINDED
     Route: 048
     Dates: start: 20050214, end: 20050329

REACTIONS (3)
  - CATARACT [None]
  - GLAUCOMA [None]
  - INTRAOCULAR PRESSURE INCREASED [None]
